FAERS Safety Report 14354483 (Version 1)
Quarter: 2018Q1

REPORT INFORMATION
  Report Type: Report from Study
  Country: DZ (occurrence: DZ)
  Receive Date: 20180105
  Receipt Date: 20180105
  Transmission Date: 20180509
  Serious: Yes (Death, Other)
  Sender: FDA-Public Use
  Company Number: DZ-ROCHE-649496

PATIENT
  Sex: Female

DRUGS (2)
  1. CAPECITABINE. [Suspect]
     Active Substance: CAPECITABINE
     Indication: BREAST CANCER METASTATIC
     Dosage: FOUR CYCLES ADMINISTERED ON DAYS 1-14 EVERY THREE WEEKS.
     Route: 048
  2. DOCETAXEL. [Suspect]
     Active Substance: DOCETAXEL
     Indication: BREAST CANCER METASTATIC
     Dosage: FOUR CYCLES ADMINISTERED ON DAY ONE FOR EVERY THREE WEEKS.
     Route: 065

REACTIONS (11)
  - Asthenia [Unknown]
  - Malignant neoplasm progression [Fatal]
  - Febrile neutropenia [Unknown]
  - Diarrhoea [Unknown]
  - Nausea [Unknown]
  - Hepatotoxicity [Unknown]
  - Palmar-plantar erythrodysaesthesia syndrome [Unknown]
  - Infection [Unknown]
  - Rash [Unknown]
  - Neutropenia [Unknown]
  - Anaemia [Unknown]
